FAERS Safety Report 9613637 (Version 1)
Quarter: 2013Q4

REPORT INFORMATION
  Report Type: Spontaneous
  Country: NL (occurrence: None)
  Receive Date: 20131008
  Receipt Date: 20131008
  Transmission Date: 20140711
  Serious: Yes (Hospitalization, Other)
  Sender: FDA-Public Use
  Company Number: 2013-NL-001501

PATIENT
  Age: 16 Year
  Sex: Female

DRUGS (1)
  1. XYREM (SODIUM OXYBATE) ORAL SOLUTION, 500MG/ML [Suspect]
     Indication: PRODUCT USED FOR UNKNOWN INDICATION

REACTIONS (11)
  - Toxicity to various agents [None]
  - Loss of consciousness [None]
  - Hypoventilation [None]
  - Oxygen saturation decreased [None]
  - Unresponsive to stimuli [None]
  - Memory impairment [None]
  - Victim of crime [None]
  - Vomiting [None]
  - Poisoning [None]
  - Eye movement disorder [None]
  - Agitation [None]
